FAERS Safety Report 4882328-4 (Version None)
Quarter: 2006Q1

REPORT INFORMATION
  Report Type: 
  Country: None (occurrence: None)
  Receive Date: 20060117
  Receipt Date: 20050620
  Transmission Date: 20060701
  Serious: Yes (Hospitalization)
  Sender: FDA-Public Use
  Company Number: JP-ROCHE-408133

PATIENT
  Age: 69 Year
  Sex: Female

DRUGS (11)
  1. NICARDIPINE HCL [Suspect]
     Indication: HYPERTENSION
     Route: 048
  2. PROGRAF [Suspect]
     Indication: MYASTHENIA GRAVIS
     Route: 048
     Dates: start: 20050513
  3. PROGRAF [Suspect]
     Route: 048
     Dates: start: 20050501, end: 20050512
  4. ALDACTONE [Suspect]
     Indication: DRUG USE FOR UNKNOWN INDICATION
     Route: 048
     Dates: end: 20050408
  5. ALDACTONE [Suspect]
     Route: 048
  6. PREDNISOLONE [Concomitant]
     Indication: DRUG USE FOR UNKNOWN INDICATION
     Route: 048
     Dates: start: 20050408
  7. MESTINON [Concomitant]
     Indication: DRUG USE FOR UNKNOWN INDICATION
     Route: 048
     Dates: start: 19990615
  8. GASTER (JAPAN) [Concomitant]
     Indication: PROPHYLAXIS
     Route: 048
     Dates: start: 20050408
  9. KALIMATE [Concomitant]
     Indication: DRUG USE FOR UNKNOWN INDICATION
     Route: 048
     Dates: start: 20050504
  10. BROTIZOLAM [Concomitant]
     Route: 048
     Dates: start: 20050408
  11. MARZULENE S [Concomitant]
     Indication: PROPHYLAXIS

REACTIONS (1)
  - HYPERKALAEMIA [None]
